FAERS Safety Report 6421150-4 (Version None)
Quarter: 2009Q4

REPORT INFORMATION
  Report Type: 
  Country: None (occurrence: None)
  Receive Date: 20091030
  Receipt Date: 20091021
  Transmission Date: 20100525
  Serious: Yes (Hospitalization, Other)
  Sender: FDA-Public Use
  Company Number: CA-JNJFOC-20090506289

PATIENT
  Sex: Male

DRUGS (1)
  1. REMICADE [Suspect]
     Indication: BEHCET'S SYNDROME
     Route: 042

REACTIONS (4)
  - CHEST DISCOMFORT [None]
  - INFUSION RELATED REACTION [None]
  - MUSCLE SPASMS [None]
  - PARAESTHESIA [None]
